FAERS Safety Report 9367638 (Version 1)
Quarter: 2013Q2

REPORT INFORMATION
  Report Type: Spontaneous
  Country: US (occurrence: US)
  Receive Date: 20130625
  Receipt Date: 20130625
  Transmission Date: 20140414
  Serious: No
  Sender: FDA-Public Use
  Company Number: US-009507513-1306USA009978

PATIENT
  Sex: Female
  Weight: 45.35 kg

DRUGS (1)
  1. NUVARING [Suspect]
     Indication: CONTRACEPTION
     Dosage: THREE WEEKS IN, ONE WEEK OUT
     Route: 067
     Dates: start: 2009

REACTIONS (3)
  - Menorrhagia [Unknown]
  - Therapeutic response decreased [Unknown]
  - Product colour issue [Unknown]
